FAERS Safety Report 8582184-7 (Version None)
Quarter: 2012Q3

REPORT INFORMATION
  Report Type: 
  Country: None (occurrence: None)
  Receive Date: 20120809
  Receipt Date: 20120731
  Transmission Date: 20120928
  Serious: Yes (Other)
  Sender: FDA-Public Use
  Company Number: DE-FRI-1000037693

PATIENT
  Sex: Female

DRUGS (2)
  1. AMITRIPTYLINE HCL [Concomitant]
     Indication: SPINAL PAIN
     Dosage: 50 MG
  2. FOSFOMYCIN [Suspect]
     Indication: URINARY TRACT INFECTION
     Dosage: 1 DF
     Route: 048
     Dates: start: 20120719, end: 20120721

REACTIONS (4)
  - ANGIOEDEMA [None]
  - VULVAL OEDEMA [None]
  - OVERDOSE [None]
  - GENITAL PAIN [None]
